FAERS Safety Report 11544532 (Version 2)
Quarter: 2015Q4

REPORT INFORMATION
  Report Type: Spontaneous
  Country: US (occurrence: US)
  Receive Date: 20150924
  Receipt Date: 20151104
  Transmission Date: 20160304
  Serious: No
  Sender: FDA-Public Use
  Company Number: PHEH2015US018474

PATIENT
  Sex: Female

DRUGS (1)
  1. ESTRADIOL. [Suspect]
     Active Substance: ESTRADIOL
     Indication: PRODUCT USED FOR UNKNOWN INDICATION
     Dosage: 0.1 MG, QD
     Route: 062

REACTIONS (7)
  - Drug ineffective [Unknown]
  - Hot flush [Unknown]
  - Arthralgia [Unknown]
  - Lethargy [Unknown]
  - Mood swings [Unknown]
  - Discomfort [Unknown]
  - Pain [Unknown]
